FAERS Safety Report 8296535-4 (Version None)
Quarter: 2012Q2

REPORT INFORMATION
  Report Type: 
  Country: None (occurrence: None)
  Receive Date: 20120418
  Receipt Date: 20120411
  Transmission Date: 20120825
  Serious: Yes (Other)
  Sender: FDA-Public Use
  Company Number: GB-MERCK-1204USA01876

PATIENT
  Age: 48 Year
  Sex: Female
  Weight: 70 kg

DRUGS (11)
  1. DECADRON [Suspect]
     Route: 048
  2. PEGFILGRASTIM [Suspect]
     Route: 058
  3. DOMPERIDONE [Suspect]
     Route: 048
  4. GRANISETRON [Suspect]
     Route: 048
  5. PACLITAXEL [Suspect]
     Indication: BREAST CANCER
     Route: 042
     Dates: start: 20110621, end: 20110705
  6. PACLITAXEL [Suspect]
     Route: 042
     Dates: start: 20110524, end: 20110607
  7. BIOTENE [Concomitant]
     Route: 065
  8. DECADRON PHOSPHATE [Suspect]
     Route: 042
  9. DOCUSATE SODIUM [Concomitant]
     Route: 065
  10. CHLORPHENIRAMINE MALEATE [Suspect]
     Route: 042
  11. RANITIDINE [Suspect]
     Route: 042

REACTIONS (3)
  - CHEST DISCOMFORT [None]
  - FATIGUE [None]
  - DYSPNOEA [None]
